FAERS Safety Report 9156220 (Version 2)
Quarter: 2013Q1

REPORT INFORMATION
  Report Type: Spontaneous
  Country: US (occurrence: US)
  Receive Date: 20130218
  Receipt Date: 20130318
  Transmission Date: 20140127
  Serious: Yes (Other)
  Sender: FDA-Public Use
  Company Number: US-RB-049970-13

PATIENT
  Age: 22 Year
  Sex: Female

DRUGS (7)
  1. GENERIC BUPRENORPHINE [Suspect]
     Indication: DRUG DEPENDENCE
     Dosage: 1/4 TABLET DAILY
     Route: 060
     Dates: start: 201209, end: 2012
  2. GENERIC BUPRENORPHINE [Suspect]
     Indication: DRUG DEPENDENCE
     Dosage: 1/4 TABLET DAILY
     Route: 060
     Dates: start: 201209, end: 2012
  3. LORTAB [Suspect]
     Indication: PRODUCT USED FOR UNKNOWN INDICATION
     Dosage: DOSING DETAILS UNKNOWN
     Route: 065
     Dates: end: 201209
  4. KLONOPIN [Suspect]
     Indication: DRUG WITHDRAWAL SYNDROME
     Dosage: DOSING DETAILS UNKNOWN
     Route: 065
     Dates: start: 201209, end: 2012
  5. KLONOPIN [Suspect]
     Indication: BIPOLAR DISORDER
     Dosage: DOSING DETAILS UNKNOWN
     Route: 065
     Dates: start: 201209, end: 2012
  6. NICOTINE [Concomitant]
     Indication: NICOTINE DEPENDENCE
     Dosage: 1.5 PACKS OF CIGARETTES PER DAY
     Route: 065
  7. PRENATAL VITAMINS [Concomitant]
     Indication: PREGNANCY
     Dosage: ONE DAILY
     Route: 065

REACTIONS (6)
  - Exposure during pregnancy [Recovered/Resolved]
  - Drug withdrawal syndrome [Recovered/Resolved]
  - Substance abuse [Recovered/Resolved]
  - Vomiting [Not Recovered/Not Resolved]
  - Dehydration [Recovered/Resolved]
  - Amniotic fluid volume decreased [Recovered/Resolved]
